FAERS Safety Report 21681349 (Version 1)
Quarter: 2022Q4

REPORT INFORMATION
  Report Type: Spontaneous
  Country: US (occurrence: None)
  Receive Date: 20221202
  Receipt Date: 20221202
  Transmission Date: 20230113
  Serious: Yes (Hospitalization, Disabling)
  Sender: FDA-Public Use
  Company Number: None

PATIENT
  Age: 53 Year
  Sex: Female
  Weight: 63 kg

DRUGS (2)
  1. CIPROFLOXACIN [Suspect]
     Active Substance: CIPROFLOXACIN
     Indication: Urinary tract infection
     Dosage: OTHER QUANTITY : 1 TABLET(S);?
     Route: 048
     Dates: start: 20210129, end: 20210130
  2. LEVOFLOXACIN [Suspect]
     Active Substance: LEVOFLOXACIN
     Indication: Appendicitis perforated
     Dosage: FREQUENCY : TWICE A DAY;?
     Route: 048
     Dates: start: 20200310, end: 20200317

REACTIONS (18)
  - Tendon pain [None]
  - Hypoaesthesia [None]
  - Chest pain [None]
  - Feeling abnormal [None]
  - Gastrointestinal disorder [None]
  - Anxiety [None]
  - Tendon disorder [None]
  - Arthralgia [None]
  - Spinal osteoarthritis [None]
  - Feeling abnormal [None]
  - Sensory disturbance [None]
  - General symptom [None]
  - Appendicitis perforated [None]
  - Nightmare [None]
  - Injury [None]
  - Emotional distress [None]
  - Mental impairment [None]
  - Toxicity to various agents [None]

NARRATIVE: CASE EVENT DATE: 20210202
